FAERS Safety Report 8107591-8 (Version None)
Quarter: 2012Q1

REPORT INFORMATION
  Report Type: 
  Country: None (occurrence: None)
  Receive Date: 20120202
  Receipt Date: 20120130
  Transmission Date: 20120608
  Serious: Yes (Other)
  Sender: FDA-Public Use
  Company Number: US-PFIZER INC-2012025184

PATIENT
  Sex: Female
  Weight: 69.388 kg

DRUGS (3)
  1. CLONAZEPAM [Concomitant]
     Indication: ANXIETY
     Dosage: UNK
  2. BUPROPION [Concomitant]
     Dosage: 300 MG, 1X/DAY
  3. EFFEXOR XR [Suspect]
     Indication: BIPOLAR DISORDER
     Dosage: 225 MG, 1X/DAY
     Route: 048
     Dates: end: 20120101

REACTIONS (5)
  - AGITATION [None]
  - SOCIAL AVOIDANT BEHAVIOUR [None]
  - DEPRESSION [None]
  - HEADACHE [None]
  - IRRITABILITY [None]
